FAERS Safety Report 6684526-6 (Version None)
Quarter: 2010Q2

REPORT INFORMATION
  Report Type: 
  Country: None (occurrence: None)
  Receive Date: 20100416
  Receipt Date: 20100406
  Transmission Date: 20101027
  Serious: Yes (Death, Hospitalization, Other)
  Sender: FDA-Public Use
  Company Number: US-ROCHE-693870

PATIENT
  Sex: Female
  Weight: 46.7 kg

DRUGS (2)
  1. BEVACIZUMAB [Suspect]
     Dosage: DOSE: 10 MG/KG. LAST ADMINISTERED DATE: 24 FEBRUARY 2010.
     Route: 065
     Dates: start: 20080501
  2. FASLODEX [Suspect]
     Dosage: LAST ADMINISTERED DATE: 24 FEBRUARY 2010.
     Route: 065
     Dates: start: 20080501

REACTIONS (8)
  - BLOOD BICARBONATE DECREASED [None]
  - BLOOD CREATININE INCREASED [None]
  - BREAST CANCER METASTATIC [None]
  - CONFUSIONAL STATE [None]
  - HYPERNATRAEMIA [None]
  - HYPOKALAEMIA [None]
  - HYPONATRAEMIA [None]
  - METABOLIC ACIDOSIS [None]
